FAERS Safety Report 5562685-6 (Version None)
Quarter: 2007Q4

REPORT INFORMATION
  Report Type: 
  Country: None (occurrence: None)
  Receive Date: 20071211
  Receipt Date: 20071211
  Transmission Date: 20080405
  Serious: Yes (Death)
  Sender: FDA-Public Use
  Company Number: None

PATIENT
  Age: 88 Year
  Sex: Female
  Weight: 70.9 kg

DRUGS (14)
  1. AMIODARONE HCL [Suspect]
     Indication: VENTRICULAR TACHYCARDIA
     Dosage: 400 MG TID PO
     Route: 048
     Dates: start: 20070227, end: 20070308
  2. CIPROFLOXACIN [Suspect]
     Indication: URINARY TRACT INFECTION
     Dosage: 500 MG ONCE PO
     Route: 048
     Dates: start: 20070304, end: 20070304
  3. ALLOPURINOL [Concomitant]
  4. DOCUSATE-SENNA [Concomitant]
  5. EZETIMIBE [Concomitant]
  6. INSULIN ASPART [Concomitant]
  7. INSULIN GLARGINE [Concomitant]
  8. ISOSORBIDE MONONITRATE [Concomitant]
  9. LEVOTHYROXINE SODIUM [Concomitant]
  10. SODIUM FERRIC GLUCONATE [Concomitant]
  11. PRAVASTATIN [Concomitant]
  12. PANTOPRAZOLE SODIUM [Concomitant]
  13. ONDANSETRON [Concomitant]
  14. PROCHLORPERAZINE [Concomitant]

REACTIONS (7)
  - BRADYCARDIA [None]
  - CARDIAC ARREST [None]
  - LOSS OF CONSCIOUSNESS [None]
  - TORSADE DE POINTES [None]
  - URINARY TRACT INFECTION [None]
  - VENTRICULAR FIBRILLATION [None]
  - VENTRICULAR TACHYCARDIA [None]
